FAERS Safety Report 23042266 (Version 1)
Quarter: 2023Q4

REPORT INFORMATION
  Report Type: Spontaneous
  Country: DE (occurrence: DE)
  Receive Date: 20231008
  Receipt Date: 20231008
  Transmission Date: 20240109
  Serious: Yes (Death, Hospitalization, Other)
  Sender: FDA-Public Use
  Company Number: DE-AUROBINDO-AUR-APL-2018-011107

PATIENT
  Age: 58 Year
  Sex: Female
  Weight: 81 kg

DRUGS (33)
  1. DOCETAXEL [Suspect]
     Active Substance: DOCETAXEL
     Indication: HER2 positive breast cancer
     Dosage: 116.4 MG, EVERY 3 WEEKS
     Route: 042
     Dates: start: 20140310, end: 20140310
  2. DOCETAXEL [Suspect]
     Active Substance: DOCETAXEL
     Dosage: 140.25 MILLIGRAM, EVERY 3 WEEKS
     Route: 042
     Dates: start: 20140331, end: 20140331
  3. DOCETAXEL [Suspect]
     Active Substance: DOCETAXEL
     Dosage: 138.75 MG, EVERY 3 WEEKS
     Route: 042
     Dates: start: 20140422, end: 20140422
  4. DOCETAXEL [Suspect]
     Active Substance: DOCETAXEL
     Dosage: 140.25 MG, EVERY 3 WEEKS
     Route: 042
     Dates: start: 20140513, end: 20140513
  5. DOCETAXEL [Suspect]
     Active Substance: DOCETAXEL
     Dosage: 187 MG, EVERY 3 WEEKS
     Route: 042
     Dates: start: 20140603, end: 20140624
  6. DOCETAXEL [Suspect]
     Active Substance: DOCETAXEL
     Dosage: 183 MG, EVERY 3 WEEKS
     Route: 042
     Dates: start: 20140826, end: 20140916
  7. HERCEPTIN [Suspect]
     Active Substance: TRASTUZUMAB
     Indication: HER2 positive breast cancer
     Dosage: 648 MILLIGRAM, LOADING DOSE
     Route: 042
     Dates: start: 20140310, end: 20140310
  8. HERCEPTIN [Suspect]
     Active Substance: TRASTUZUMAB
     Dosage: 444 MILLIGRAM, 3 WEEK
     Route: 042
     Dates: start: 20140331, end: 20140331
  9. HERCEPTIN [Suspect]
     Active Substance: TRASTUZUMAB
     Dosage: 432 MG, EVERY 3 WEEKS
     Route: 042
     Dates: start: 20130422, end: 20130422
  10. HERCEPTIN [Suspect]
     Active Substance: TRASTUZUMAB
     Dosage: 444 MILLIGRAM 3 PER WEEK
     Route: 042
     Dates: start: 20140513, end: 20140624
  11. HERCEPTIN [Suspect]
     Active Substance: TRASTUZUMAB
     Dosage: 486 MG, EVERY 3 WEEKS
     Route: 042
     Dates: start: 20140715, end: 20140715
  12. HERCEPTIN [Suspect]
     Active Substance: TRASTUZUMAB
     Dosage: 422 MILLIGRAM
     Route: 042
     Dates: start: 20140805, end: 20141013
  13. HERCEPTIN [Suspect]
     Active Substance: TRASTUZUMAB
     Dosage: 648 MILLIGRAM, 3 PER WEEK
     Route: 042
     Dates: end: 20140916
  14. HERCEPTIN [Suspect]
     Active Substance: TRASTUZUMAB
     Dosage: 422 MILLIGRAM
     Route: 042
  15. PERJETA [Suspect]
     Active Substance: PERTUZUMAB
     Indication: HER2 positive breast cancer
     Dosage: 420 MG, EVERY 3 WEEKS (MAINTENANCE DOSE)
     Route: 042
     Dates: start: 20140331, end: 20141013
  16. PERJETA [Suspect]
     Active Substance: PERTUZUMAB
     Dosage: 840 MG, (LOADING DOSE)
     Route: 042
     Dates: start: 20140307, end: 20140307
  17. Ciprobay [Concomitant]
     Indication: Neutropenia
     Dosage: 1000 MILLIGRAM, ONCE A DAY
     Route: 048
     Dates: start: 20140319, end: 20140324
  18. Ciprobay [Concomitant]
     Indication: Leukopenia
     Dosage: 1000 MILLIGRAM, ONCE A DAY
     Route: 048
     Dates: start: 20140523, end: 20140527
  19. Ciprobay [Concomitant]
     Dosage: 1000 MILLIGRAM
     Route: 048
     Dates: start: 20140903, end: 20140907
  20. RANITIDINE HYDROCHLORIDE [Concomitant]
     Active Substance: RANITIDINE HYDROCHLORIDE
     Indication: Premedication
     Dosage: 50 MILLIGRAM
     Route: 042
     Dates: start: 20140331
  21. RANITIDINE HYDROCHLORIDE [Concomitant]
     Active Substance: RANITIDINE HYDROCHLORIDE
     Dosage: 50 MILLIGRAM
     Route: 042
  22. CLEMASTINE FUMARATE [Concomitant]
     Active Substance: CLEMASTINE FUMARATE
     Indication: Product used for unknown indication
     Dosage: 2 MILLIGRAM, CYCLICAL, IN EACH CYCLE
     Route: 042
     Dates: start: 20140331
  23. DEXAMETHASONE [Concomitant]
     Active Substance: DEXAMETHASONE
     Indication: Hypersensitivity
     Dosage: 8 MILLIGRAM, UNK
     Route: 042
  24. DEXAMETHASONE [Concomitant]
     Active Substance: DEXAMETHASONE
     Dosage: 4 MILLIGRAM, ONCE A DAY
     Route: 048
     Dates: start: 20140303, end: 20140310
  25. DEXAMETHASONE [Concomitant]
     Active Substance: DEXAMETHASONE
     Dosage: 8 MILLIGRAM, ONCE A DAY
     Route: 048
     Dates: start: 20140303, end: 20140407
  26. DEXAMETHASONE [Concomitant]
     Active Substance: DEXAMETHASONE
     Dosage: 8 MILLIGRAM, UNK
     Route: 042
     Dates: start: 20140331
  27. DEXAMETHASONE [Concomitant]
     Active Substance: DEXAMETHASONE
     Dosage: 6 MILLIGRAM, ONCE A DAY
     Route: 048
     Dates: start: 20140408, end: 20140410
  28. DEXAMETHASONE [Concomitant]
     Active Substance: DEXAMETHASONE
     Dosage: 4 MILLIGRAM, ONCE A DAY
     Route: 048
     Dates: start: 20140411, end: 20140413
  29. DEXAMETHASONE [Concomitant]
     Active Substance: DEXAMETHASONE
     Dosage: 2 MILLIGRAM
     Route: 048
     Dates: start: 20140414, end: 20140416
  30. Ciprohexal [Concomitant]
     Indication: Leukopenia
     Dosage: 1000 MILLIGRAM, ONCE A DAY
     Route: 048
     Dates: start: 20140610, end: 20140617
  31. Ciprohexal [Concomitant]
     Indication: Neutropenia
     Dosage: 1000 MILLIGRAM, ONCE A DAY
     Route: 048
     Dates: start: 20140812, end: 20140816
  32. LEVOTHYROXINE SODIUM [Concomitant]
     Active Substance: LEVOTHYROXINE SODIUM
     Indication: Hypothyroidism
     Dosage: 75 MICROGRAM, DAILY
     Route: 048
  33. POTASSIUM [Concomitant]
     Active Substance: POTASSIUM
     Indication: Hypokalaemia
     Dosage: UNK
     Route: 065

REACTIONS (18)
  - Cerebral disorder [Fatal]
  - Metastases to central nervous system [Fatal]
  - Neoplasm progression [Fatal]
  - Balance disorder [Not Recovered/Not Resolved]
  - Visual impairment [Not Recovered/Not Resolved]
  - Fatigue [Not Recovered/Not Resolved]
  - Dysarthria [Not Recovered/Not Resolved]
  - Neutropenia [Recovered/Resolved]
  - Dysstasia [Not Recovered/Not Resolved]
  - Diarrhoea [Recovered/Resolved]
  - Disorientation [Not Recovered/Not Resolved]
  - Compression fracture [Not Recovered/Not Resolved]
  - Leukopenia [Recovered/Resolved]
  - Fall [Unknown]
  - Vomiting [Recovered/Resolved]
  - Paraesthesia [Not Recovered/Not Resolved]
  - Gait disturbance [Not Recovered/Not Resolved]
  - Weight decreased [Not Recovered/Not Resolved]

NARRATIVE: CASE EVENT DATE: 20140312
